FAERS Safety Report 9612699 (Version 20)
Quarter: 2015Q2

REPORT INFORMATION
  Report Type: Report from Study
  Country: TR (occurrence: TR)
  Receive Date: 20131010
  Receipt Date: 20150622
  Transmission Date: 20150821
  Serious: Yes (Hospitalization)
  Sender: FDA-Public Use
  Company Number: TR-ROCHE-1219881

PATIENT
  Age: 74 Year
  Sex: Male
  Weight: 78 kg

DRUGS (11)
  1. APREPITANT. [Concomitant]
     Active Substance: APREPITANT
     Indication: PROPHYLAXIS OF NAUSEA AND VOMITING
     Route: 065
     Dates: start: 20130425, end: 20130807
  2. ERYTHROCYTES [Concomitant]
     Active Substance: HUMAN RED BLOOD CELL
     Indication: ANAEMIA
     Dosage: 2 UNIT OF SUSPENSION
     Route: 065
     Dates: start: 20130828, end: 20130828
  3. TRASTUZUMAB [Suspect]
     Active Substance: TRASTUZUMAB
     Indication: GASTRIC CANCER
     Dosage: LOADING DOSE
     Route: 042
     Dates: start: 20130425
  4. ESOMEPRAZOLE [Concomitant]
     Active Substance: ESOMEPRAZOLE
     Route: 065
     Dates: start: 20130425
  5. CISPLATIN. [Suspect]
     Active Substance: CISPLATIN
     Indication: GASTRIC CANCER
     Dosage: LAST DOSE PRIOR TO SAE: 07/AUG/2013, LAST DOSE TAKEN: 160 MG
     Route: 042
     Dates: start: 20130425
  6. PHENIRAMINE MALEATE [Concomitant]
     Active Substance: PHENIRAMINE MALEATE
     Indication: PREMEDICATION
     Route: 065
     Dates: start: 20130425
  7. PALONOSETRON [Concomitant]
     Active Substance: PALONOSETRON
     Indication: PREMEDICATION
     Route: 065
     Dates: start: 20130425, end: 20130807
  8. TRASTUZUMAB [Suspect]
     Active Substance: TRASTUZUMAB
     Dosage: MAINTAINANCE DOSE:?LAST DOSE PRIOR TO SAE 760 MG ON 29/AUG/2013.
     Route: 042
     Dates: start: 20130516
  9. DEKSAMETAZON [Concomitant]
     Indication: PREMEDICATION
     Route: 065
     Dates: start: 20130425, end: 20130807
  10. CAPECITABINE. [Suspect]
     Active Substance: CAPECITABINE
     Indication: GASTRIC CANCER
     Dosage: LAST DOSE PRIOR ON 21/AUG/2013, LAST TOTAL DOSE TAKEN: 3150 MG
     Route: 048
     Dates: start: 20130425
  11. MANNITOL. [Concomitant]
     Active Substance: MANNITOL
     Route: 065
     Dates: start: 20130425, end: 20130807

REACTIONS (1)
  - Peripheral embolism [Recovered/Resolved]

NARRATIVE: CASE EVENT DATE: 20130429
